FAERS Safety Report 17362127 (Version 2)
Quarter: 2020Q1

REPORT INFORMATION
  Report Type: Spontaneous
  Country: RO (occurrence: RO)
  Receive Date: 20200203
  Receipt Date: 20200213
  Transmission Date: 20200409
  Serious: Yes (Other)
  Sender: FDA-Public Use
  Company Number: RO-PFIZER INC-2020013594

PATIENT
  Age: 68 Year
  Sex: Male
  Weight: 67 kg

DRUGS (10)
  1. SUTENT [Suspect]
     Active Substance: SUNITINIB MALATE
     Indication: METASTATIC RENAL CELL CARCINOMA
     Dosage: 50 MG, CYCLIC, (28 DAYS OF TREATMENT AND 14 DAYS OF PAUSE)
     Route: 048
     Dates: start: 20181203, end: 20191220
  2. TENAXUM [Concomitant]
     Active Substance: RILMENIDINE
     Dosage: UNK, AS NEEDED
  3. SEVIKAR [Concomitant]
     Active Substance: AMLODIPINE BESYLATE\OLMESARTAN MEDOXOMIL
     Dosage: UNK
  4. AVODART [Concomitant]
     Active Substance: DUTASTERIDE
     Dosage: UNK
  5. SORTIS [Concomitant]
     Active Substance: ATORVASTATIN
     Dosage: UNK
  6. EUTHYROX [Concomitant]
     Active Substance: LEVOTHYROXINE SODIUM
     Dosage: UNK
  7. METOPROLOL. [Concomitant]
     Active Substance: METOPROLOL
     Dosage: UNK
  8. TERTENSIF [Concomitant]
     Active Substance: INDAPAMIDE
     Dosage: UNK
  9. SUTENT [Suspect]
     Active Substance: SUNITINIB MALATE
     Dosage: 50 MG, CYCLIC, (28 DAYS OF TREATMENT AND 14 DAYS OF PAUSE)
     Dates: end: 20200106
  10. ASPENTER [Concomitant]
     Active Substance: ASPIRIN
     Dosage: UNK

REACTIONS (15)
  - Renal disorder [Recovering/Resolving]
  - Mitral valve incompetence [Recovering/Resolving]
  - Aortic stenosis [Recovering/Resolving]
  - Renal failure [Recovering/Resolving]
  - Glomerulonephritis [Recovering/Resolving]
  - Leukocytosis [Recovering/Resolving]
  - Ischaemic nephropathy [Recovering/Resolving]
  - Neutrophilia [Recovering/Resolving]
  - Blood creatinine increased [Recovering/Resolving]
  - Hypertensive nephropathy [Recovering/Resolving]
  - Primary hypothyroidism [Recovering/Resolving]
  - Rash [Recovered/Resolved]
  - Benign prostatic hyperplasia [Recovering/Resolving]
  - Chronic kidney disease [Recovering/Resolving]
  - Aortic arteriosclerosis [Recovering/Resolving]

NARRATIVE: CASE EVENT DATE: 20190910
